FAERS Safety Report 20382144 (Version 10)
Quarter: 2024Q1

REPORT INFORMATION
  Report Type: Report from Study
  Country: CA (occurrence: CA)
  Receive Date: 20220127
  Receipt Date: 20240305
  Transmission Date: 20240410
  Serious: Yes (Other)
  Sender: FDA-Public Use
  Company Number: CA-BAUSCH-BL-2021-034002

PATIENT
  Age: 55 Year
  Sex: Male

DRUGS (19)
  1. SILIQ [Suspect]
     Active Substance: BRODALUMAB
     Indication: Psoriasis
     Dosage: DOSAGE: 210 MG/ 1.5 ML, WEEK 0, WEEK 1 AND WEEK 2
     Route: 058
     Dates: start: 20210929, end: 202110
  2. SILIQ [Suspect]
     Active Substance: BRODALUMAB
     Dosage: DOSAGE: 210 MG/ 1.5 ML
     Route: 058
     Dates: start: 202112
  3. SILIQ [Suspect]
     Active Substance: BRODALUMAB
     Dosage: DOSAGE: 210 MG/ 1.5 ML
     Route: 058
     Dates: start: 20220106
  4. SILIQ [Suspect]
     Active Substance: BRODALUMAB
     Dosage: DOSAGE: 210 MG/ 1.5 ML
     Route: 058
     Dates: start: 20220429
  5. SILIQ [Suspect]
     Active Substance: BRODALUMAB
     Dosage: DOSAGE: 210 MG/ 1.5 ML
     Route: 058
     Dates: start: 20220517
  6. SILIQ [Suspect]
     Active Substance: BRODALUMAB
     Dosage: DOSAGE: 210 MG/ 1.5 ML
     Route: 058
     Dates: start: 20220622
  7. SILIQ [Suspect]
     Active Substance: BRODALUMAB
     Dosage: DOSAGE: 210 MG/ 1.5 ML
     Route: 058
     Dates: start: 20221013
  8. SILIQ [Suspect]
     Active Substance: BRODALUMAB
     Dosage: DOSAGE: 210 MG/ 1.5 ML
     Route: 058
     Dates: start: 20221222
  9. SILIQ [Suspect]
     Active Substance: BRODALUMAB
     Dosage: DOSAGE: 210 MG/ 1.5 ML
     Route: 058
     Dates: start: 20230215
  10. SILIQ [Suspect]
     Active Substance: BRODALUMAB
     Dosage: DOSAGE: 210 MG/ 1.5 ML
     Route: 058
     Dates: start: 20230816
  11. SILIQ [Suspect]
     Active Substance: BRODALUMAB
     Dosage: DOSAGE: 210 MG/ 1.5 ML
     Route: 058
     Dates: start: 20240131
  12. BETAMETHASONE DIPROPIONATE\CALCIPOTRIENE MONOHYDRATE [Concomitant]
     Active Substance: BETAMETHASONE DIPROPIONATE\CALCIPOTRIENE MONOHYDRATE
     Indication: Product used for unknown indication
  13. FOLIC ACID [Concomitant]
     Active Substance: FOLIC ACID
     Indication: Product used for unknown indication
  14. JARDIANCE [Concomitant]
     Active Substance: EMPAGLIFLOZIN
     Indication: Product used for unknown indication
  15. EMPAGLIFLOZIN [Concomitant]
     Active Substance: EMPAGLIFLOZIN
     Indication: Product used for unknown indication
  16. AMLODIPINE [Concomitant]
     Active Substance: AMLODIPINE BESYLATE
     Indication: Product used for unknown indication
  17. ROSUVASTATIN [Concomitant]
     Active Substance: ROSUVASTATIN
     Indication: Product used for unknown indication
  18. ASPIRIN [Concomitant]
     Active Substance: ASPIRIN
     Indication: Product used for unknown indication
  19. RAMIPRIL [Concomitant]
     Active Substance: RAMIPRIL
     Indication: Product used for unknown indication

REACTIONS (7)
  - Hypertension [Not Recovered/Not Resolved]
  - Tachycardia [Not Recovered/Not Resolved]
  - Fear of injection [Unknown]
  - Family stress [Not Recovered/Not Resolved]
  - Fatigue [Recovered/Resolved]
  - Product dose omission issue [Unknown]
  - Intentional dose omission [Unknown]

NARRATIVE: CASE EVENT DATE: 20210930
